FAERS Safety Report 8569417-8 (Version None)
Quarter: 2012Q3

REPORT INFORMATION
  Report Type: 
  Country: None (occurrence: None)
  Receive Date: 20120803
  Receipt Date: 20120502
  Transmission Date: 20120928
  Serious: No
  Sender: FDA-Public Use
  Company Number: US-ABBOTT-12P-163-0931936-00

PATIENT
  Sex: Female
  Weight: 77.18 kg

DRUGS (4)
  1. DESEPRAMINE [Concomitant]
     Indication: IRRITABLE BOWEL SYNDROME
  2. VITAMIN TAB [Concomitant]
     Indication: PRODUCT USED FOR UNKNOWN INDICATION
  3. NIASPAN [Suspect]
     Indication: BLOOD CHOLESTEROL INCREASED
     Dates: start: 20120401
  4. HORMONE PATCH [Concomitant]

REACTIONS (5)
  - FEELING HOT [None]
  - HYPERHIDROSIS [None]
  - FLUSHING [None]
  - PRURITUS [None]
  - PARAESTHESIA [None]
